FAERS Safety Report 9411488 (Version 1)
Quarter: 2013Q3

REPORT INFORMATION
  Report Type: Spontaneous
  Country: US (occurrence: None)
  Receive Date: 20130718
  Receipt Date: 20130718
  Transmission Date: 20140515
  Serious: Yes (Other)
  Sender: FDA-Public Use
  Company Number: None

PATIENT
  Age: 56 Year
  Sex: Male
  Weight: 48.6 kg

DRUGS (1)
  1. STRIBILD [Suspect]
     Indication: ACQUIRED IMMUNODEFICIENCY SYNDROME
     Dosage: ONE TABLET ONCE DAILY
     Route: 048
     Dates: start: 20130528, end: 20130610

REACTIONS (6)
  - Local swelling [None]
  - Local swelling [None]
  - Pain [None]
  - Impaired work ability [None]
  - Arthralgia [None]
  - Gout [None]
